FAERS Safety Report 8238730-6 (Version None)
Quarter: 2012Q1

REPORT INFORMATION
  Report Type: 
  Country: None (occurrence: None)
  Receive Date: 20120327
  Receipt Date: 20120319
  Transmission Date: 20120608
  Serious: Yes (Other)
  Sender: FDA-Public Use
  Company Number: US-ASTRAZENECA-2012SE19225

PATIENT
  Age: 49 Year
  Sex: Female

DRUGS (2)
  1. NEXIUM [Suspect]
     Route: 048
  2. PRILOSEC OTC [Suspect]
     Route: 048

REACTIONS (5)
  - DIARRHOEA [None]
  - DIABETES MELLITUS [None]
  - THYROID DISORDER [None]
  - HERNIA [None]
  - DIABETIC EYE DISEASE [None]
